FAERS Safety Report 20819378 (Version 1)
Quarter: 2022Q2

REPORT INFORMATION
  Report Type: Spontaneous
  Country: US (occurrence: US)
  Receive Date: 20220512
  Receipt Date: 20220512
  Transmission Date: 20220721
  Serious: No
  Sender: FDA-Public Use
  Company Number: US-FDC LIMITED-2021RIS00010

PATIENT
  Sex: Female

DRUGS (2)
  1. TIMOLOL MALEATE [Suspect]
     Active Substance: TIMOLOL MALEATE
     Indication: Glaucoma
     Dosage: 1 DROP, 1X/DAY IN RIGHT EYE IN THE MORNING ONLY
     Route: 047
     Dates: end: 20210505
  2. TIMOLOL MALEATE [Suspect]
     Active Substance: TIMOLOL MALEATE
     Dosage: 1 DROP, 2X/DAY IN RIGHT EYE THE MORNING AND EVENING
     Route: 047
     Dates: start: 20210506, end: 20210510

REACTIONS (2)
  - Vertigo [Recovering/Resolving]
  - Dizziness [Recovering/Resolving]

NARRATIVE: CASE EVENT DATE: 20210510
